FAERS Safety Report 16091046 (Version 1)
Quarter: 2019Q1

REPORT INFORMATION
  Report Type: Spontaneous
  Country: US (occurrence: US)
  Receive Date: 20190319
  Receipt Date: 20190319
  Transmission Date: 20190418
  Serious: No
  Sender: FDA-Public Use
  Company Number: US-ELI_LILLY_AND_COMPANY-US201902013174

PATIENT
  Sex: Female

DRUGS (1)
  1. EMGALITY [Suspect]
     Active Substance: GALCANEZUMAB-GNLM
     Indication: PRODUCT USED FOR UNKNOWN INDICATION
     Dosage: UNK, UNKNOWN
     Route: 065
     Dates: start: 20181214

REACTIONS (3)
  - Headache [Recovered/Resolved]
  - Upper respiratory tract infection [Not Recovered/Not Resolved]
  - Pain in jaw [Recovering/Resolving]

NARRATIVE: CASE EVENT DATE: 20181214
